FAERS Safety Report 7495521-1 (Version None)
Quarter: 2011Q2

REPORT INFORMATION
  Report Type: 
  Country: None (occurrence: None)
  Receive Date: 20110523
  Receipt Date: 20110509
  Transmission Date: 20111010
  Serious: Yes (Hospitalization, Other)
  Sender: FDA-Public Use
  Company Number: HR-JNJFOC-20110505057

PATIENT
  Age: 30 Year
  Sex: Male

DRUGS (13)
  1. RISPERDAL CONSTA [Suspect]
     Route: 030
     Dates: start: 20080401, end: 20080901
  2. RISPERDAL CONSTA [Suspect]
     Route: 030
     Dates: start: 20100201
  3. RISPERDAL CONSTA [Suspect]
     Route: 030
     Dates: start: 20080401, end: 20080901
  4. RISPERDAL CONSTA [Suspect]
     Indication: AFFECT LABILITY
     Route: 030
     Dates: start: 20080101, end: 20080401
  5. LEPONEX [Suspect]
     Indication: ACUTE PSYCHOSIS
     Dosage: 0, 0, 1
     Route: 065
     Dates: start: 20100201
  6. RISPERDAL CONSTA [Suspect]
     Indication: ACUTE PSYCHOSIS
     Route: 030
     Dates: start: 20100201
  7. RISPERDAL CONSTA [Suspect]
     Indication: PSYCHOTIC DISORDER
     Route: 030
     Dates: start: 20080401, end: 20080901
  8. RISPERDAL CONSTA [Suspect]
     Route: 030
     Dates: start: 20100201
  9. RISPERDAL CONSTA [Suspect]
     Route: 030
     Dates: start: 20080401, end: 20080901
  10. RISPERDAL CONSTA [Suspect]
     Route: 030
     Dates: start: 20100201
  11. RISPERDAL CONSTA [Suspect]
     Route: 030
     Dates: start: 20080101, end: 20080401
  12. RISPERDAL CONSTA [Suspect]
     Indication: ALCOHOL POISONING
     Route: 030
     Dates: start: 20080101, end: 20080401
  13. RISPERDAL CONSTA [Suspect]
     Route: 030
     Dates: start: 20080101, end: 20080401

REACTIONS (3)
  - TREATMENT NONCOMPLIANCE [None]
  - CONDITION AGGRAVATED [None]
  - CEREBROVASCULAR ACCIDENT [None]
